FAERS Safety Report 21858201 (Version 1)
Quarter: 2023Q1

REPORT INFORMATION
  Report Type: Spontaneous
  Country: US (occurrence: None)
  Receive Date: 20230112
  Receipt Date: 20230112
  Transmission Date: 20230418
  Serious: Yes (Hospitalization)
  Sender: FDA-Public Use
  Company Number: None

PATIENT
  Age: 39 Year
  Sex: Female

DRUGS (1)
  1. COSENTYX [Suspect]
     Active Substance: SECUKINUMAB
     Indication: Psoriasis
     Dosage: 150MG/ML SUBCUTANEOUS
     Route: 058

REACTIONS (3)
  - Bone lesion excision [None]
  - Ankle operation [None]
  - Ligament operation [None]

NARRATIVE: CASE EVENT DATE: 20221215
